FAERS Safety Report 15310134 (Version 3)
Quarter: 2020Q3

REPORT INFORMATION
  Report Type: Spontaneous
  Country: US (occurrence: US)
  Receive Date: 20180823
  Receipt Date: 20200929
  Transmission Date: 20201102
  Serious: No
  Sender: FDA-Public Use
  Company Number: US-PFIZER INC-2018338727

PATIENT
  Age: 18 Year
  Sex: Male

DRUGS (2)
  1. GENOTROPIN [Suspect]
     Active Substance: SOMATROPIN
     Dosage: 1.0 MG (THREE DAYS A WEEK)
     Dates: start: 20100405
  2. GENOTROPIN [Suspect]
     Active Substance: SOMATROPIN
     Dosage: 2.0 MG, UNK (5 DAYS A WEEK)
     Dates: start: 20100405

REACTIONS (3)
  - Blood calcium increased [Unknown]
  - Insulin-like growth factor decreased [Unknown]
  - Bone density decreased [Unknown]
